FAERS Safety Report 4532840-2 (Version None)
Quarter: 2004Q4

REPORT INFORMATION
  Report Type: 
  Country: None (occurrence: None)
  Receive Date: 20041206
  Receipt Date: 20041018
  Transmission Date: 20050328
  Serious: No
  Sender: FDA-Public Use
  Company Number: USA041081350

PATIENT
  Sex: Male

DRUGS (4)
  1. CYMBALTA [Suspect]
     Indication: NEUROPATHIC PAIN
     Dosage: 60 MG DAY
     Dates: start: 20041004
  2. GLUCOPHAGE [Concomitant]
  3. AMARYL [Concomitant]
  4. NEURONTIN (GABAPENTIN PFIZER) [Concomitant]

REACTIONS (1)
  - BLOOD GLUCOSE INCREASED [None]
